FAERS Safety Report 7670378-4 (Version None)
Quarter: 2011Q3

REPORT INFORMATION
  Report Type: 
  Country: None (occurrence: None)
  Receive Date: 20110809
  Receipt Date: 20110727
  Transmission Date: 20111222
  Serious: No
  Sender: FDA-Public Use
  Company Number: US-BIOGENIDEC-2011BI028232

PATIENT
  Age: 63 Year
  Sex: Female

DRUGS (2)
  1. TYSABRI [Suspect]
     Indication: MULTIPLE SCLEROSIS
     Route: 042
     Dates: start: 20060201
  2. CRYSTALLINE VIT B12 INJ [Concomitant]
     Indication: OXYGEN SATURATION INCREASED

REACTIONS (3)
  - GAIT DISTURBANCE [None]
  - CYSTITIS [None]
  - VIRAL INFECTION [None]
